FAERS Safety Report 10485250 (Version 4)
Quarter: 2016Q4

REPORT INFORMATION
  Report Type: Report from Study
  Country: AU (occurrence: AU)
  Receive Date: 20140930
  Receipt Date: 20161209
  Transmission Date: 20170206
  Serious: Yes (Other)
  Sender: FDA-Public Use
  Company Number: PHHY2014AU092206

PATIENT
  Sex: Female

DRUGS (1)
  1. SANDOSTATIN LAR DEPOT [Suspect]
     Active Substance: OCTREOTIDE ACETATE
     Indication: CARCINOID SYNDROME
     Dosage: 30 MG, UNK
     Route: 030

REACTIONS (10)
  - Fatigue [Recovering/Resolving]
  - Anxiety [Unknown]
  - Flushing [Unknown]
  - Asthenia [Unknown]
  - Depression [Recovering/Resolving]
  - Feeling abnormal [Unknown]
  - Vitamin B12 decreased [Unknown]
  - Skin discolouration [Unknown]
  - Heart rate increased [Unknown]
  - General physical health deterioration [Not Recovered/Not Resolved]
